FAERS Safety Report 6632342-3 (Version None)
Quarter: 2010Q1

REPORT INFORMATION
  Report Type: 
  Country: None (occurrence: None)
  Receive Date: 20100312
  Receipt Date: 20100308
  Transmission Date: 20100710
  Serious: Yes (Life-Threatening)
  Sender: FDA-Public Use
  Company Number: D0066741A

PATIENT
  Sex: Male

DRUGS (10)
  1. SALBUHEXAL [Suspect]
     Indication: ASTHMA
     Route: 055
     Dates: start: 20080712
  2. PROTHAZIN [Suspect]
     Dosage: 20DROP AT NIGHT
     Route: 048
     Dates: start: 20080528
  3. AESCIN [Suspect]
     Indication: CONTUSION
     Route: 061
     Dates: start: 20080627
  4. ERYTHROMYCIN [Suspect]
     Indication: FOLLICULITIS
     Route: 061
     Dates: start: 20080627
  5. NEOANGIN [Suspect]
     Route: 048
     Dates: start: 20080712
  6. SULTANOL [Concomitant]
     Route: 055
     Dates: start: 20080715
  7. PARACETAMOL [Concomitant]
     Route: 048
     Dates: start: 20080715, end: 20080715
  8. FENISTIL [Concomitant]
     Indication: PRURITUS
     Route: 061
     Dates: start: 20080715, end: 20080715
  9. CEFUROXIME [Concomitant]
     Indication: TONSILLITIS
     Dosage: 500MG TWICE PER DAY
     Route: 048
     Dates: start: 20080715, end: 20080715
  10. MIFLONIDE [Concomitant]
     Route: 055
     Dates: start: 20080715, end: 20080715

REACTIONS (12)
  - BLISTER [None]
  - DYSPNOEA [None]
  - LIP EROSION [None]
  - MYCOPLASMA INFECTION [None]
  - OBSTRUCTIVE AIRWAYS DISORDER [None]
  - OCULAR HYPERAEMIA [None]
  - ORAL MUCOSA EROSION [None]
  - PRURITUS [None]
  - PYREXIA [None]
  - RASH MACULAR [None]
  - TONSILLITIS [None]
  - TOXIC EPIDERMAL NECROLYSIS [None]
